FAERS Safety Report 4760515-3 (Version None)
Quarter: 2005Q3

REPORT INFORMATION
  Report Type: 
  Country: None (occurrence: None)
  Receive Date: 20050823
  Receipt Date: 20050428
  Transmission Date: 20060218
  Serious: Yes (Congenital Anomaly)
  Sender: FDA-Public Use
  Company Number: 403531

PATIENT

DRUGS (1)
  1. ISOTRETINOIN [Suspect]
     Indication: DRUG USE FOR UNKNOWN INDICATION

REACTIONS (6)
  - CHROMOSOME ABNORMALITY [None]
  - DRUG EXPOSURE DURING PREGNANCY [None]
  - EYE DISORDER [None]
  - FIBROSIS [None]
  - LACRIMATION INCREASED [None]
  - OPHTHALMOPLEGIA [None]
